FAERS Safety Report 7528326-3 (Version None)
Quarter: 2011Q2

REPORT INFORMATION
  Report Type: 
  Country: None (occurrence: None)
  Receive Date: 20110531
  Receipt Date: 20110516
  Transmission Date: 20111010
  Serious: Yes (Hospitalization)
  Sender: FDA-Public Use
  Company Number: 2011MA005968

PATIENT
  Age: 24 Year
  Sex: Female

DRUGS (1)
  1. PROPYLTHIOURACIL [Suspect]
     Indication: HYPERTHYROIDISM
     Dosage: 50 MG;BID
     Dates: start: 20070101

REACTIONS (10)
  - OEDEMA PERIPHERAL [None]
  - CHEST PAIN [None]
  - PALPITATIONS [None]
  - TEMPERATURE INTOLERANCE [None]
  - MUSCULOSKELETAL STIFFNESS [None]
  - HYPERTHYROIDISM [None]
  - WEIGHT DECREASED [None]
  - DIZZINESS [None]
  - MUSCULOSKELETAL PAIN [None]
  - MUSCLE SPASMS [None]
